FAERS Safety Report 13402068 (Version 1)
Quarter: 2017Q2

REPORT INFORMATION
  Report Type: Spontaneous
  Country: BR (occurrence: BR)
  Receive Date: 20170404
  Receipt Date: 20170404
  Transmission Date: 20170830
  Serious: Yes (Other)
  Sender: FDA-Public Use
  Company Number: BR-ASTRAZENECA-2017SE32579

PATIENT
  Age: 82 Year
  Sex: Female

DRUGS (7)
  1. ROSUVASTATIN. [Suspect]
     Active Substance: ROSUVASTATIN
     Route: 048
  2. VERAPAMIL [Concomitant]
     Active Substance: VERAPAMIL HYDROCHLORIDE
  3. IVABRADINE [Concomitant]
     Active Substance: IVABRADINE
  4. TRIMETAZIDINE [Concomitant]
     Active Substance: TRIMETAZIDINE
  5. FUROSEMIDE. [Concomitant]
     Active Substance: FUROSEMIDE
  6. CLOPIDOGREL [Concomitant]
     Active Substance: CLOPIDOGREL BISULFATE
  7. IVABRADINE [Concomitant]
     Active Substance: IVABRADINE

REACTIONS (12)
  - Cardiothoracic ratio increased [Recovered/Resolved]
  - Pulmonary congestion [Recovered/Resolved]
  - Left atrial enlargement [Recovered/Resolved]
  - Ventricular hypokinesia [Recovered/Resolved]
  - Systolic dysfunction [Recovered/Resolved]
  - Angina pectoris [Recovered/Resolved]
  - Sinus bradycardia [Recovered/Resolved]
  - Respiratory tract infection [Recovered/Resolved]
  - Myocardial ischaemia [Recovered/Resolved]
  - Bundle branch block left [Recovered/Resolved]
  - Arteriosclerosis coronary artery [Recovered/Resolved]
  - Aortic valve stenosis [Recovered/Resolved]
